FAERS Safety Report 17632156 (Version 1)
Quarter: 2020Q2

REPORT INFORMATION
  Report Type: Spontaneous
  Country: US (occurrence: US)
  Receive Date: 20200406
  Receipt Date: 20200406
  Transmission Date: 20200713
  Serious: No
  Sender: FDA-Public Use
  Company Number: US-EPIC PHARMA LLC-2019EPC00306

PATIENT
  Sex: Male

DRUGS (1)
  1. NICARDIPINE HCL [Suspect]
     Active Substance: NICARDIPINE HYDROCHLORIDE
     Dosage: 20 MG, 2X/DAY
     Route: 048
     Dates: start: 201910

REACTIONS (2)
  - Pruritus [Not Recovered/Not Resolved]
  - Off label use [Not Recovered/Not Resolved]

NARRATIVE: CASE EVENT DATE: 201910
